APPROVED DRUG PRODUCT: VERAPAMIL HYDROCHLORIDE
Active Ingredient: VERAPAMIL HYDROCHLORIDE
Strength: 10MG/4ML (2.5MG/ML)
Dosage Form/Route: SOLUTION;INTRAVENOUS
Application: A213352 | Product #001 | TE Code: AP
Applicant: NEPHRON PHARMACEUTICALS CORPORATION
Approved: Mar 17, 2020 | RLD: No | RS: No | Type: RX